FAERS Safety Report 8858789 (Version 1)
Quarter: 2012Q4

REPORT INFORMATION
  Report Type: 
  Country: US (occurrence: US)
  Receive Date: 20121024
  Receipt Date: 20121024
  Transmission Date: 20130627
  Serious: No
  Sender: FDA-Public Use
  Company Number: US-PFIZER INC-2012264259

PATIENT

DRUGS (2)
  1. EFFEXOR XR [Suspect]
     Dosage: 75mg a day
  2. EFFEXOR XR [Suspect]
     Dosage: UNK
     Dates: start: 20120531

REACTIONS (13)
  - Swelling face [Unknown]
  - Oedema peripheral [Unknown]
  - Insomnia [Unknown]
  - Feeling jittery [Unknown]
  - Nervousness [Unknown]
  - Constipation [Unknown]
  - Dry mouth [Unknown]
  - Somnolence [Unknown]
  - Paraesthesia [Unknown]
  - Burning sensation [Unknown]
  - Erythema [Unknown]
  - Pruritus [Unknown]
  - Withdrawal syndrome [Unknown]
